FAERS Safety Report 19835688 (Version 1)
Quarter: 2021Q3

REPORT INFORMATION
  Report Type: Spontaneous
  Country: US (occurrence: US)
  Receive Date: 20210915
  Receipt Date: 20210915
  Transmission Date: 20211014
  Serious: No
  Sender: FDA-Public Use
  Company Number: US-PFIZER INC-202101065755

PATIENT
  Age: 66 Year
  Sex: Female
  Weight: 58.97 kg

DRUGS (1)
  1. GENOTROPIN [Suspect]
     Active Substance: SOMATROPIN
     Indication: GROWTH HORMONE DEFICIENCY
     Dosage: UNK, 1X/DAY (0.3 INJECTION ONCE A DAY)
     Dates: start: 202106

REACTIONS (4)
  - Underdose [Unknown]
  - Device issue [Unknown]
  - Device information output issue [Unknown]
  - Wrong technique in device usage process [Unknown]
